FAERS Safety Report 7199217-5 (Version None)
Quarter: 2010Q4

REPORT INFORMATION
  Report Type: 
  Country: None (occurrence: None)
  Receive Date: 20101223
  Receipt Date: 20101223
  Transmission Date: 20110411
  Serious: Yes (Other)
  Sender: FDA-Public Use
  Company Number: None

PATIENT
  Age: 49 Year
  Sex: Female
  Weight: 63.9572 kg

DRUGS (1)
  1. GABAPENTIN [Suspect]
     Indication: NECK PAIN
     Dosage: 300MG QAM, 600 MG QHS
     Route: 048
     Dates: start: 20101221, end: 20101221

REACTIONS (6)
  - ASTHENIA [None]
  - HYPOAESTHESIA [None]
  - NAUSEA [None]
  - OEDEMA [None]
  - SOMNOLENCE [None]
  - VOMITING [None]
